FAERS Safety Report 9234566 (Version 1)
Quarter: 2013Q2

REPORT INFORMATION
  Report Type: Spontaneous
  Country: US (occurrence: US)
  Receive Date: 20130416
  Receipt Date: 20130416
  Transmission Date: 20140414
  Serious: No
  Sender: FDA-Public Use
  Company Number: US-PFIZER INC-2013116223

PATIENT
  Age: 56 Year
  Sex: Female

DRUGS (2)
  1. CELEBREX [Suspect]
     Indication: OSTEOARTHRITIS
     Dosage: 200 MG, TWO TIMES A DAY
     Dates: end: 201303
  2. CELEBREX [Suspect]
     Indication: FIBROMYALGIA

REACTIONS (2)
  - Hyperhidrosis [Not Recovered/Not Resolved]
  - Rash macular [Not Recovered/Not Resolved]
